FAERS Safety Report 15138951 (Version 1)
Quarter: 2018Q3

REPORT INFORMATION
  Report Type: Spontaneous
  Country: US (occurrence: US)
  Receive Date: 20180713
  Receipt Date: 20180713
  Transmission Date: 20181010
  Serious: No
  Sender: FDA-Public Use
  Company Number: US-ASTRAZENECA-2018SE79798

PATIENT
  Sex: Female

DRUGS (2)
  1. BYDUREON BCISE [Suspect]
     Active Substance: EXENATIDE
     Dosage: DOSE UNKNOWN
     Route: 065
  2. BYDUREON [Suspect]
     Active Substance: EXENATIDE
     Dosage: DOSE UNKNOWN
     Route: 065

REACTIONS (5)
  - Injection site pruritus [Unknown]
  - Injection site haemorrhage [Unknown]
  - Underdose [Unknown]
  - Injection site erythema [Unknown]
  - Injection site mass [Unknown]
